FAERS Safety Report 8445907 (Version 3)
Quarter: 2017Q3

REPORT INFORMATION
  Report Type: Spontaneous
  Country: US (occurrence: US)
  Receive Date: 20120307
  Receipt Date: 20170720
  Transmission Date: 20171128
  Serious: No
  Sender: FDA-Public Use
  Company Number: PH-ASTRAZENECA-2011SE47211

PATIENT
  Age: 58 Year
  Sex: Female
  Weight: 50.8 kg

DRUGS (9)
  1. ZOMIG [Suspect]
     Active Substance: ZOLMITRIPTAN
     Indication: MIGRAINE
     Dosage: 5.0MG AS REQUIRED
     Route: 048
     Dates: start: 201408
  2. ZOMIG [Suspect]
     Active Substance: ZOLMITRIPTAN
     Indication: MIGRAINE
     Dosage: 2.5MG AS REQUIRED
     Route: 048
  3. CLIMARA [Concomitant]
     Active Substance: ESTRADIOL
     Indication: HORMONE THERAPY
     Dosage: 0.35
  4. CARAFATE [Concomitant]
     Active Substance: SUCRALFATE
     Indication: PEPTIC ULCER
  5. ZOMIG [Suspect]
     Active Substance: ZOLMITRIPTAN
     Indication: MIGRAINE
     Dosage: 5 MG 3 CT AS REQUIRED
     Route: 048
  6. ZOMIG [Suspect]
     Active Substance: ZOLMITRIPTAN
     Indication: MIGRAINE
     Dosage: 5.0MG AS REQUIRED
     Route: 048
     Dates: start: 2001
  7. LIPITOR [Concomitant]
     Active Substance: ATORVASTATIN CALCIUM
     Indication: BLOOD CHOLESTEROL ABNORMAL
  8. ZOMIG [Suspect]
     Active Substance: ZOLMITRIPTAN
     Indication: MIGRAINE
     Dosage: 2.5MG AS REQUIRED
     Route: 048
     Dates: start: 2001
  9. PROMETRIUM [Concomitant]
     Active Substance: PROGESTERONE
     Indication: HORMONE THERAPY

REACTIONS (10)
  - Oral herpes [Not Recovered/Not Resolved]
  - Urticaria [Unknown]
  - Gastrooesophageal reflux disease [Unknown]
  - Migraine [Unknown]
  - Dysphonia [Not Recovered/Not Resolved]
  - Dry skin [Not Recovered/Not Resolved]
  - Nasopharyngitis [Unknown]
  - Joint swelling [Not Recovered/Not Resolved]
  - Drug prescribing error [Unknown]
  - Wrong technique in product usage process [Unknown]

NARRATIVE: CASE EVENT DATE: 2001
